FAERS Safety Report 5088435-8 (Version None)
Quarter: 2006Q3

REPORT INFORMATION
  Report Type: 
  Country: None (occurrence: None)
  Receive Date: 20060821
  Receipt Date: 20060808
  Transmission Date: 20061208
  Serious: Yes (Death)
  Sender: FDA-Public Use
  Company Number: S06-USA-00386-01

PATIENT
  Age: 19 Year
  Sex: Female

DRUGS (8)
  1. LEXAPRO [Suspect]
     Indication: ANXIETY
     Dosage: 10 MG QD PO
     Route: 048
     Dates: start: 20060127, end: 20060207
  2. LEXAPRO [Suspect]
     Indication: DEPRESSION
     Dosage: 10 MG QD PO
     Route: 048
     Dates: start: 20060127, end: 20060207
  3. COUMADIN [Suspect]
     Dosage: 5 MG
     Dates: start: 20060129, end: 20060130
  4. ATIVAN [Concomitant]
  5. HEPARIN [Concomitant]
  6. LOVENOX [Concomitant]
  7. NORCO (HYDROCODONE/ACETAMINOPHEN) [Concomitant]
  8. LASIX [Concomitant]

REACTIONS (29)
  - ACID BASE BALANCE ABNORMAL [None]
  - ALANINE AMINOTRANSFERASE INCREASED [None]
  - ASPARTATE AMINOTRANSFERASE INCREASED [None]
  - BLOOD CREATININE INCREASED [None]
  - BLOOD PRESSURE DECREASED [None]
  - BLOOD SODIUM DECREASED [None]
  - BLOOD UREA INCREASED [None]
  - BREATH SOUNDS ABNORMAL [None]
  - CARDIAC FAILURE [None]
  - CARDIO-RESPIRATORY ARREST [None]
  - COAGULATION FACTOR V LEVEL DECREASED [None]
  - COAGULATION FACTOR VII LEVEL DECREASED [None]
  - COAGULATION FACTOR X LEVEL DECREASED [None]
  - DRUG INTERACTION [None]
  - HEART RATE INCREASED [None]
  - HYPERCALCAEMIA [None]
  - INTERNATIONAL NORMALISED RATIO INCREASED [None]
  - LIPASE INCREASED [None]
  - METABOLIC ACIDOSIS [None]
  - PERICARDIAL EFFUSION [None]
  - PERIPHERAL COLDNESS [None]
  - PLEURAL EFFUSION [None]
  - POSTPERICARDIOTOMY SYNDROME [None]
  - PROTHROMBIN LEVEL DECREASED [None]
  - URINE OUTPUT DECREASED [None]
  - VENTRICULAR EXTRASYSTOLES [None]
  - VENTRICULAR FIBRILLATION [None]
  - VOMITING [None]
  - WHITE BLOOD CELL COUNT INCREASED [None]
